FAERS Safety Report 19812393 (Version 1)
Quarter: 2021Q3

REPORT INFORMATION
  Report Type: Spontaneous
  Country: US (occurrence: US)
  Receive Date: 20210910
  Receipt Date: 20210910
  Transmission Date: 20211014
  Serious: No
  Sender: FDA-Public Use
  Company Number: US-ITALFARMACO SPA-2118233

PATIENT
  Age: 74 Year
  Sex: Male

DRUGS (11)
  1. LOSARTAN AND HYDROCHLOROTHIAZIDE [Concomitant]
     Active Substance: HYDROCHLOROTHIAZIDE\LOSARTAN POTASSIUM
  2. METFORMIN [Concomitant]
     Active Substance: METFORMIN HYDROCHLORIDE
  3. ASPIRIN. [Concomitant]
     Active Substance: ASPIRIN
  4. ATORVASTATIN CALCIUM. [Concomitant]
     Active Substance: ATORVASTATIN CALCIUM
  5. PATADAY [Concomitant]
     Active Substance: OLOPATADINE HYDROCHLORIDE
  6. TIGLUTIK [Suspect]
     Active Substance: RILUZOLE
     Indication: AMYOTROPHIC LATERAL SCLEROSIS
     Route: 048
     Dates: start: 20210712
  7. ZYRTEC [Concomitant]
     Active Substance: CETIRIZINE HYDROCHLORIDE
  8. ALBUTEROL SULFATE. [Concomitant]
     Active Substance: ALBUTEROL SULFATE
  9. FLONASE [Concomitant]
     Active Substance: FLUTICASONE PROPIONATE
  10. METOPROLOL. [Concomitant]
     Active Substance: METOPROLOL
  11. PLAVIX [Concomitant]
     Active Substance: CLOPIDOGREL BISULFATE

REACTIONS (1)
  - Abdominal discomfort [Recovering/Resolving]
